FAERS Safety Report 17261560 (Version 1)
Quarter: 2020Q1

REPORT INFORMATION
  Report Type: Spontaneous
  Country: JP (occurrence: JP)
  Receive Date: 20200113
  Receipt Date: 20200113
  Transmission Date: 20200409
  Serious: Yes (Other)
  Sender: FDA-Public Use
  Company Number: JP-SA-2020SA004817

PATIENT
  Sex: Female

DRUGS (1)
  1. LANTUS SOLOSTAR [Suspect]
     Active Substance: INSULIN GLARGINE
     Indication: DIABETES MELLITUS
     Dosage: DOSAGE: UNKNOWN, ABDOMINAL INJECTION IN THE MORNING
     Route: 058

REACTIONS (4)
  - Injection site extravasation [Unknown]
  - Cerebral infarction [Unknown]
  - Injection site bruising [Recovered/Resolved]
  - Wrong technique in product usage process [Unknown]
